FAERS Safety Report 4422956-3 (Version None)
Quarter: 2004Q3

REPORT INFORMATION
  Report Type: 
  Country: None (occurrence: None)
  Receive Date: 20040806
  Receipt Date: 20040726
  Transmission Date: 20050211
  Serious: Yes (Hospitalization)
  Sender: FDA-Public Use
  Company Number: US-JNJFOC-20040707030

PATIENT
  Age: 63 Year
  Sex: Female

DRUGS (17)
  1. INFLIXIMAB (INFLIXIMAB, RECOMBINANT) LYOPHILIZED POWDER [Suspect]
     Indication: RHEUMATOID ARTHRITIS
     Dosage: INTRAVENOUS
     Route: 042
     Dates: start: 20010315, end: 20021101
  2. AMZTRIPTYLINE (AMITRIPTYLINE) [Concomitant]
  3. PREDNISONE [Concomitant]
  4. PREMARIN [Concomitant]
  5. CELEBREX [Concomitant]
  6. ISONIAZID [Concomitant]
  7. HYDROCHLOROTHIAZIDE [Concomitant]
  8. FOLIC ACID [Concomitant]
  9. IMURAN [Concomitant]
  10. PRILOSEC [Concomitant]
  11. VITAMIN C (ASCORBIC ACID) [Concomitant]
  12. VITAMIN E [Concomitant]
  13. IRON (IRON) [Concomitant]
  14. VITAMIN B (VITAMIN B) [Concomitant]
  15. MULTIVITAMIN (MULTIVITAMINS) [Concomitant]
  16. CALCIUM (CALCIUM) [Concomitant]
  17. ACETAMINOPHEN [Concomitant]

REACTIONS (1)
  - CHOLECYSTECTOMY [None]
